FAERS Safety Report 7982149-X (Version None)
Quarter: 2011Q4

REPORT INFORMATION
  Report Type: 
  Country: None (occurrence: None)
  Receive Date: 20111214
  Receipt Date: 20111214
  Transmission Date: 20120403
  Serious: Yes (Other)
  Sender: FDA-Public Use
  Company Number: None

PATIENT
  Age: 55 Year
  Sex: Male

DRUGS (2)
  1. RIBAVARIN [Suspect]
     Dosage: 500MG BID PO
     Route: 048
     Dates: start: 20110907, end: 20111212
  2. PEGASYS [Suspect]
     Dosage: 180MCG WEEKLY SQ
     Route: 058
     Dates: start: 20110907, end: 20111212

REACTIONS (3)
  - RASH [None]
  - BLISTER [None]
  - PRURITUS [None]
